FAERS Safety Report 6594501-8 (Version None)
Quarter: 2010Q1

REPORT INFORMATION
  Report Type: 
  Country: None (occurrence: None)
  Receive Date: 20100218
  Receipt Date: 20100218
  Transmission Date: 20100710
  Serious: Yes (Life-Threatening, Hospitalization)
  Sender: FDA-Public Use
  Company Number: None

PATIENT
  Age: 78 Year
  Sex: Male

DRUGS (2)
  1. CIPROFLOXACIN IN DEXTROSE [Suspect]
     Indication: INFECTION
     Dosage: 400 MG BID IV ; 10 MG TID IV
     Route: 042
     Dates: start: 20091103, end: 20091110
  2. CIPROFLOXACIN IN DEXTROSE [Suspect]
     Indication: PROPHYLAXIS
     Dosage: 400 MG BID IV ; 10 MG TID IV
     Route: 042
     Dates: start: 20091103, end: 20091110

REACTIONS (8)
  - ABDOMINAL PAIN [None]
  - BAND NEUTROPHIL COUNT INCREASED [None]
  - DECREASED APPETITE [None]
  - POIKILOCYTOSIS [None]
  - RALES [None]
  - RED BLOOD CELL SCHISTOCYTES PRESENT [None]
  - THROMBOCYTOPENIA [None]
  - WHITE BLOOD CELL COUNT INCREASED [None]
